FAERS Safety Report 6145100-3 (Version None)
Quarter: 2009Q2

REPORT INFORMATION
  Report Type: 
  Country: None (occurrence: None)
  Receive Date: 20090406
  Receipt Date: 20090304
  Transmission Date: 20091009
  Serious: No
  Sender: FDA-Public Use
  Company Number: A0771358A

PATIENT
  Age: 83 Year
  Sex: Female

DRUGS (3)
  1. ADVAIR HFA [Suspect]
     Indication: CHRONIC OBSTRUCTIVE PULMONARY DISEASE
     Dosage: 1PUFF TWICE PER DAY
     Route: 055
     Dates: start: 20090217
  2. ALBUTEROL [Concomitant]
  3. IPRATROPIUM BROMIDE [Concomitant]

REACTIONS (2)
  - CONSTIPATION [None]
  - WEIGHT INCREASED [None]
